FAERS Safety Report 21812946 (Version 4)
Quarter: 2023Q2

REPORT INFORMATION
  Report Type: Report from Study
  Country: IT (occurrence: IT)
  Receive Date: 20230103
  Receipt Date: 20230425
  Transmission Date: 20230721
  Serious: Yes (Hospitalization)
  Sender: FDA-Public Use
  Company Number: IT-ROCHE-3164874

PATIENT
  Age: 57 Year
  Sex: Female
  Weight: 68 kg

DRUGS (37)
  1. PREDNISONE [Suspect]
     Active Substance: PREDNISONE
     Indication: Diffuse large B-cell lymphoma
     Dosage: 25 MILLIGRAM, QD
     Route: 048
     Dates: start: 20220704, end: 20220706
  2. PREDNISONE [Suspect]
     Active Substance: PREDNISONE
     Dosage: 50 MILLIGRAM, QD
     Route: 048
     Dates: start: 20220719, end: 20220723
  3. PREDNISONE [Suspect]
     Active Substance: PREDNISONE
     Dosage: 25 MILLIGRAM, QD
     Route: 048
     Dates: start: 20220727, end: 20220729
  4. PREDNISONE [Suspect]
     Active Substance: PREDNISONE
     Dosage: 100 MILLIGRAM, QD
     Route: 048
     Dates: start: 20220824, end: 20220828
  5. RITUXIMAB [Suspect]
     Active Substance: RITUXIMAB
     Indication: Diffuse large B-cell lymphoma
     Dosage: DATE OF LAST DOSE PRIOR TO EVENT: 08/AUG/2022
     Route: 042
     Dates: start: 20220718
  6. VINCRISTINE [Suspect]
     Active Substance: VINCRISTINE
     Indication: Diffuse large B-cell lymphoma
     Dosage: 1.4 MILLIGRAM/SQ. METER, Q3W
     Route: 042
     Dates: start: 20220719, end: 20220719
  7. VINCRISTINE [Suspect]
     Active Substance: VINCRISTINE
     Dosage: 1 MILLIGRAM/SQ. METER, Q3W
     Route: 042
     Dates: start: 20220824, end: 20220824
  8. EPCORITAMAB [Suspect]
     Active Substance: EPCORITAMAB
     Indication: Diffuse large B-cell lymphoma
     Dosage: PRIMING DOSE: 0.16 MG, SINGLE
     Route: 058
     Dates: start: 20220719, end: 20220719
  9. EPCORITAMAB [Suspect]
     Active Substance: EPCORITAMAB
     Dosage: INTERMEDIATE DOSE: 0.8 MG, SINGLE
     Route: 058
     Dates: start: 20220726, end: 20220726
  10. EPCORITAMAB [Suspect]
     Active Substance: EPCORITAMAB
     Dosage: FULL DOSE: 48 MG, WEEKLY
     Route: 058
     Dates: start: 20220803, end: 20220803
  11. EPCORITAMAB [Suspect]
     Active Substance: EPCORITAMAB
     Dosage: FULL DOSE: 48 MG, WEEKLY
     Route: 058
     Dates: start: 20220824
  12. DOXORUBICIN [Suspect]
     Active Substance: DOXORUBICIN
     Indication: Diffuse large B-cell lymphoma
     Dosage: 50 MILLIGRAM/SQ. METER, Q3W
     Route: 042
     Dates: start: 20220719, end: 20220719
  13. DOXORUBICIN [Suspect]
     Active Substance: DOXORUBICIN
     Dosage: 33 MILLIGRAM/SQ. METER, Q3W
     Route: 042
     Dates: start: 20220824, end: 20220824
  14. CYCLOPHOSPHAMIDE [Suspect]
     Active Substance: CYCLOPHOSPHAMIDE
     Indication: Diffuse large B-cell lymphoma
     Dosage: 750 MILLIGRAM/SQ. METER, Q3W
     Route: 042
     Dates: start: 20220719, end: 20220719
  15. CYCLOPHOSPHAMIDE [Suspect]
     Active Substance: CYCLOPHOSPHAMIDE
     Dosage: 493 MILLIGRAM/SQ. METER, Q3W
     Route: 042
     Dates: start: 20220824, end: 20220824
  16. CHLORPHENIRAMINE MALEATE [Concomitant]
     Active Substance: CHLORPHENIRAMINE MALEATE
     Dosage: 10 MILLIGRAM
     Route: 065
     Dates: start: 20220726, end: 20220803
  17. CHLORPHENIRAMINE MALEATE [Concomitant]
     Active Substance: CHLORPHENIRAMINE MALEATE
     Dosage: UNK
     Route: 065
     Dates: start: 20220719, end: 20220824
  18. METHYLPREDNISOLONE [Concomitant]
     Active Substance: METHYLPREDNISOLONE
     Dosage: UNK
     Route: 065
     Dates: start: 20220712, end: 20220712
  19. METHYLPREDNISOLONE [Concomitant]
     Active Substance: METHYLPREDNISOLONE
     Dosage: 80 MILLIGRAM
     Route: 065
     Dates: start: 20220726, end: 20220726
  20. METHYLPREDNISOLONE [Concomitant]
     Active Substance: METHYLPREDNISOLONE
     Dosage: 80 MILLIGRAM
     Route: 065
     Dates: start: 20220803, end: 20220803
  21. CEFIXIME [Concomitant]
     Active Substance: CEFIXIME
     Dosage: UNK
     Route: 065
     Dates: start: 20220714
  22. SULFAMETHOXAZOLE\TRIMETHOPRIM [Concomitant]
     Active Substance: SULFAMETHOXAZOLE\TRIMETHOPRIM
     Dosage: UNK
     Route: 065
     Dates: start: 20220718
  23. FAMOTIDINE [Concomitant]
     Active Substance: FAMOTIDINE
     Dosage: UNK
     Route: 065
     Dates: start: 20220719, end: 20220719
  24. RABEPRAZOLE [Concomitant]
     Active Substance: RABEPRAZOLE
     Dosage: UNK
     Route: 065
     Dates: start: 20220711
  25. ENOXAPARIN SODIUM [Concomitant]
     Active Substance: ENOXAPARIN SODIUM
     Dosage: UNK
     Route: 065
     Dates: start: 20220711
  26. METOCLOPRAMIDE [Concomitant]
     Active Substance: METOCLOPRAMIDE
     Dosage: UNK
     Route: 065
     Dates: start: 20220720, end: 20220720
  27. ACETAMINOPHEN [Concomitant]
     Active Substance: ACETAMINOPHEN
     Dosage: UNK
     Route: 065
     Dates: start: 20220712, end: 20220720
  28. ACETAMINOPHEN [Concomitant]
     Active Substance: ACETAMINOPHEN
     Dosage: UNK
     Route: 065
     Dates: start: 20220719, end: 20220824
  29. ACETAMINOPHEN [Concomitant]
     Active Substance: ACETAMINOPHEN
     Dosage: 1000 MILLIGRAM
     Route: 065
     Dates: start: 20220726, end: 20220803
  30. METHOTREXATE SODIUM [Concomitant]
     Active Substance: METHOTREXATE SODIUM
     Dosage: UNK
     Route: 065
     Dates: start: 20220712, end: 20220712
  31. ACYCLOVIR [Concomitant]
     Active Substance: ACYCLOVIR
     Dosage: UNK
     Route: 065
     Dates: start: 20220718
  32. ALLOPURINOL [Concomitant]
     Active Substance: ALLOPURINOL
     Dosage: UNK
     Route: 065
     Dates: start: 20220711
  33. BUTYLSCOPOLAMINE [Concomitant]
     Active Substance: BUTYLSCOPOLAMINE
     Dosage: UNK
     Route: 065
     Dates: start: 20220720, end: 20220720
  34. HYDROCORTISONE [Concomitant]
     Active Substance: HYDROCORTISONE
     Dosage: 100 MILLIGRAM
     Route: 065
     Dates: start: 20220718, end: 20220718
  35. PREDNISONE [Concomitant]
     Active Substance: PREDNISONE
     Dosage: 50 MILLIGRAM, QD,CRS PROPHYLAXIS
     Route: 065
     Dates: start: 20220711, end: 20220718
  36. PREDNISONE [Concomitant]
     Active Substance: PREDNISONE
     Dosage: 100 MILLIGRAM
     Route: 065
     Dates: start: 20220804, end: 20220806
  37. METHOTREXATE [Concomitant]
     Active Substance: METHOTREXATE
     Dosage: UNK
     Route: 065

REACTIONS (1)
  - Gastrointestinal perforation [Recovered/Resolved]

NARRATIVE: CASE EVENT DATE: 20220809
